FAERS Safety Report 24567342 (Version 1)
Quarter: 2024Q4

REPORT INFORMATION
  Report Type: Spontaneous
  Country: US (occurrence: US)
  Receive Date: 20241030
  Receipt Date: 20241030
  Transmission Date: 20250115
  Serious: No
  Sender: SUNOVION
  Company Number: US-SMPA-2024SPA004310AA

PATIENT

DRUGS (1)
  1. ORGOVYX [Suspect]
     Active Substance: RELUGOLIX
     Dosage: UNK
     Route: 048
     Dates: end: 20241017

REACTIONS (4)
  - Andropause [Unknown]
  - Hyperhidrosis [Unknown]
  - Hot flush [Unknown]
  - Diarrhoea [Unknown]
